FAERS Safety Report 20535815 (Version 1)
Quarter: 2022Q1

REPORT INFORMATION
  Report Type: Spontaneous
  Country: FR (occurrence: FR)
  Receive Date: 20220302
  Receipt Date: 20220302
  Transmission Date: 20220424
  Serious: Yes (Hospitalization)
  Sender: FDA-Public Use
  Company Number: None

PATIENT
  Age: 75 Year
  Sex: Female
  Weight: 88 kg

DRUGS (3)
  1. TRAMADOL HYDROCHLORIDE [Interacting]
     Active Substance: TRAMADOL HYDROCHLORIDE
     Indication: Pain
     Dosage: UNK
     Route: 048
     Dates: start: 202106, end: 20210709
  2. LEVOFLOXACIN [Interacting]
     Active Substance: LEVOFLOXACIN
     Indication: Osteitis
     Dosage: 750 MILLIGRAM
     Route: 048
     Dates: start: 20210702, end: 20210713
  3. METRONIDAZOLE [Interacting]
     Active Substance: METRONIDAZOLE
     Indication: Osteitis
     Dosage: 1500 MILLIGRAM, 1/DAY
     Route: 048
     Dates: start: 20210702, end: 20210713

REACTIONS (4)
  - Encephalopathy [Recovered/Resolved]
  - Drug interaction [Recovered/Resolved]
  - Drug interaction [Recovered/Resolved]
  - Myoclonus [Recovered/Resolved]

NARRATIVE: CASE EVENT DATE: 20210709
